FAERS Safety Report 15438507 (Version 1)
Quarter: 2018Q3

REPORT INFORMATION
  Report Type: Spontaneous
  Country: ES (occurrence: ES)
  Receive Date: 20180928
  Receipt Date: 20180928
  Transmission Date: 20181010
  Serious: Yes (Other)
  Sender: FDA-Public Use
  Company Number: ES-AUROBINDO-AUR-APL-2018-047510

PATIENT
  Age: 29 Year
  Sex: Female

DRUGS (4)
  1. CETIRIZINA                         /00884301/ [Concomitant]
     Active Substance: CETIRIZINE HYDROCHLORIDE
     Indication: UPPER RESPIRATORY TRACT INFECTION
     Dosage: 10 MILLIGRAM, ONCE A DAY
     Route: 048
     Dates: start: 20180806, end: 20180810
  2. AVAMYS [Concomitant]
     Active Substance: FLUTICASONE FUROATE
     Indication: UPPER RESPIRATORY TRACT INFECTION
     Dosage: 27.5 MICROGRAM, 12 HOUR
     Route: 045
     Dates: start: 20180806, end: 20180810
  3. DESOGESTREL [Concomitant]
     Active Substance: DESOGESTREL
     Indication: PRODUCT USED FOR UNKNOWN INDICATION
     Dosage: 75 MICROGRAM, ONCE A DAY
     Route: 048
  4. MOXIFLOXACIN. [Suspect]
     Active Substance: MOXIFLOXACIN
     Indication: UPPER RESPIRATORY TRACT INFECTION
     Dosage: 400 MILLIGRAM, ONCE A DAY
     Route: 048
     Dates: start: 20180806, end: 20180810

REACTIONS (2)
  - Diarrhoea [Recovered/Resolved]
  - Sinus tachycardia [Recovered/Resolved]

NARRATIVE: CASE EVENT DATE: 20180810
